FAERS Safety Report 16119983 (Version 3)
Quarter: 2019Q4

REPORT INFORMATION
  Report Type: Spontaneous
  Country: US (occurrence: US)
  Receive Date: 20190326
  Receipt Date: 20191216
  Transmission Date: 20200122
  Serious: Yes (Other)
  Sender: FDA-Public Use
  Company Number: US-LUNDBECK-DKLU2062422

PATIENT
  Age: 87 Year
  Sex: Male

DRUGS (3)
  1. NORTHERA [Suspect]
     Active Substance: DROXIDOPA
     Route: 065
  2. MIDODRINE [Concomitant]
     Active Substance: MIDODRINE
     Indication: PRODUCT USED FOR UNKNOWN INDICATION
     Route: 065
  3. NORTHERA [Suspect]
     Active Substance: DROXIDOPA
     Indication: PRODUCT USED FOR UNKNOWN INDICATION
     Route: 048
     Dates: start: 201902

REACTIONS (12)
  - General physical health deterioration [Unknown]
  - Disorientation [Unknown]
  - Therapeutic response decreased [Unknown]
  - Nocturia [Unknown]
  - Blood pressure decreased [Unknown]
  - Tremor [Unknown]
  - Stupor [Unknown]
  - Hypotension [Unknown]
  - Dizziness [Unknown]
  - Blood pressure fluctuation [Unknown]
  - Carpal tunnel decompression [Unknown]
  - Loss of consciousness [Unknown]

NARRATIVE: CASE EVENT DATE: 201911
